FAERS Safety Report 19952675 (Version 1)
Quarter: 2021Q4

REPORT INFORMATION
  Report Type: Spontaneous
  Country: US (occurrence: US)
  Receive Date: 20211012
  Receipt Date: 20211012
  Transmission Date: 20220303
  Serious: No
  Sender: FDA-Public Use
  Company Number: None

PATIENT
  Age: 69 Year
  Sex: Male

DRUGS (2)
  1. GLIPIZIDE [Suspect]
     Active Substance: GLIPIZIDE
     Indication: Diabetes mellitus
     Route: 048
     Dates: start: 20151231, end: 20210816
  2. ALOGLIPTIN [Suspect]
     Active Substance: ALOGLIPTIN
     Indication: Diabetes mellitus
     Route: 048
     Dates: start: 20190326, end: 20210820

REACTIONS (5)
  - Fall [None]
  - Confusional state [None]
  - Syncope [None]
  - Hypoglycaemia [None]
  - Tremor [None]

NARRATIVE: CASE EVENT DATE: 20210816
